FAERS Safety Report 8603257-6 (Version None)
Quarter: 2012Q3

REPORT INFORMATION
  Report Type: 
  Country: None (occurrence: None)
  Receive Date: 20120817
  Receipt Date: 20120301
  Transmission Date: 20120928
  Serious: Yes (Hospitalization)
  Sender: FDA-Public Use
  Company Number: DE-ACTELION-A-US2012-62009

PATIENT
  Age: 40 Year
  Sex: Female

DRUGS (3)
  1. VOLIBRIS [Concomitant]
  2. VENTAVIS [Suspect]
     Indication: PULMONARY ARTERIAL HYPERTENSION
     Dosage: UNK
     Route: 055
     Dates: start: 20100517
  3. REVATIO [Concomitant]

REACTIONS (2)
  - EAR PAIN [None]
  - PNEUMONIA [None]
